FAERS Safety Report 5305922-5 (Version None)
Quarter: 2007Q2

REPORT INFORMATION
  Report Type: 
  Country: None (occurrence: None)
  Receive Date: 20070424
  Receipt Date: 20070416
  Transmission Date: 20071010
  Serious: Yes (Disabling, Other)
  Sender: FDA-Public Use
  Company Number: GB-GLAXOSMITHKLINE-B0467513A

PATIENT
  Age: 56 Year
  Sex: Female
  Weight: 137.5 kg

DRUGS (16)
  1. ROSIGLITAZONE [Suspect]
     Indication: DIABETES MELLITUS
     Route: 048
     Dates: start: 20030519, end: 20070108
  2. ASPIRIN [Concomitant]
     Route: 048
     Dates: start: 20020722
  3. CANDESARTAN [Concomitant]
     Indication: HYPERTENSION
     Route: 048
     Dates: start: 20060821, end: 20061002
  4. CANDESARTAN [Concomitant]
     Route: 048
     Dates: start: 20061002
  5. DOXAZOSIN MESYLATE [Concomitant]
     Indication: HYPERTENSION
     Route: 048
     Dates: start: 20060612, end: 20061201
  6. DOXAZOSIN MESYLATE [Concomitant]
     Route: 048
     Dates: start: 20061201
  7. METFORMIN HCL [Concomitant]
     Indication: DIABETES MELLITUS
     Route: 048
     Dates: start: 20020304
  8. BUMETANIDE [Concomitant]
  9. CO-CODAMOL [Concomitant]
  10. CO-DYDRAMOL [Concomitant]
  11. DICLOFENAC [Concomitant]
  12. EVOREL CONTI [Concomitant]
  13. FELODIPINE [Concomitant]
  14. FERROUS SULFATE TAB [Concomitant]
  15. RANITIDINE [Concomitant]
  16. ROSUVASTATIN [Concomitant]

REACTIONS (2)
  - ANAEMIA [None]
  - MYELODYSPLASTIC SYNDROME [None]
